FAERS Safety Report 9892322 (Version 1)
Quarter: 2014Q1

REPORT INFORMATION
  Report Type: Spontaneous
  Country: DE (occurrence: DE)
  Receive Date: 20140212
  Receipt Date: 20140212
  Transmission Date: 20141002
  Serious: Yes (Life-Threatening, Hospitalization, Disabling)
  Sender: FDA-Public Use
  Company Number: GXKR2014DE000853

PATIENT
  Sex: 0

DRUGS (6)
  1. CLOZAPINE [Suspect]
     Indication: SCHIZOPHRENIA, PARANOID TYPE
     Dosage: 250 MG, UNK
     Route: 048
     Dates: start: 2001, end: 20140113
  2. CLOZAPINE [Suspect]
     Dosage: GRADUAL DOSE REDUCTION (125 MG - 0 MG)
     Route: 048
     Dates: start: 20140114, end: 20140130
  3. CARVEDILOL [Concomitant]
     Dosage: 3.125
     Route: 048
  4. TORASEMID [Concomitant]
  5. RAMIPRIL [Concomitant]
  6. DIAZEPAM [Concomitant]

REACTIONS (1)
  - Congestive cardiomyopathy [Not Recovered/Not Resolved]
